FAERS Safety Report 9576947 (Version 1)
Quarter: 2013Q4

REPORT INFORMATION
  Report Type: Spontaneous
  Country: US (occurrence: US)
  Receive Date: 20131001
  Receipt Date: 20131001
  Transmission Date: 20140711
  Serious: No
  Sender: FDA-Public Use
  Company Number: US-AMGEN-USASP2013005276

PATIENT
  Age: 77 Year
  Sex: Female
  Weight: 79.37 kg

DRUGS (11)
  1. ENBREL [Suspect]
     Indication: RHEUMATOID ARTHRITIS
     Dosage: 50 MG, QWK
     Route: 058
  2. COSOPT [Concomitant]
     Dosage: 2-0.5% OP
  3. METHOTREXATE [Concomitant]
     Dosage: 2.5 MG, UNK
  4. TRAVATAN [Concomitant]
     Dosage: 0.004%
  5. BENADRYL                           /00000402/ [Concomitant]
     Dosage: 25 MG, UNK
  6. SYNTHROID [Concomitant]
     Dosage: 75 MUG, UNK
  7. OMEPRAZOLE [Concomitant]
     Dosage: 40 MG, UNK
  8. HYDROXYCHLOROQUINE [Concomitant]
     Dosage: 200 MG, UNK
  9. PREDNISONE [Concomitant]
     Dosage: 5 MG, UNK
  10. VITAMIN D3 [Concomitant]
     Dosage: 5000 UNIT, UNK
  11. VITAMIN B12                        /00056201/ [Concomitant]
     Dosage: 1000 CR, UNK, UNK

REACTIONS (1)
  - Condition aggravated [Unknown]
